FAERS Safety Report 11014891 (Version 2)
Quarter: 2015Q2

REPORT INFORMATION
  Report Type: Spontaneous
  Country: US (occurrence: US)
  Receive Date: 20150412
  Receipt Date: 20150525
  Transmission Date: 20150821
  Serious: No
  Sender: FDA-Public Use
  Company Number: US-JNJFOC-20130708776

PATIENT
  Age: 74 Year
  Sex: Female
  Weight: 51.71 kg

DRUGS (6)
  1. TYLENOL [Suspect]
     Active Substance: ACETAMINOPHEN
     Route: 065
  2. TYLENOL [Suspect]
     Active Substance: ACETAMINOPHEN
     Indication: PRODUCT USED FOR UNKNOWN INDICATION
     Route: 065
  3. TRAMADOL [Suspect]
     Active Substance: TRAMADOL
     Indication: PRODUCT USED FOR UNKNOWN INDICATION
     Route: 065
     Dates: start: 20130516
  4. DICYCLOMINE [Concomitant]
     Active Substance: DICYCLOMINE HYDROCHLORIDE
     Indication: GASTROINTESTINAL DISORDER
     Route: 048
     Dates: start: 20130516, end: 20130706
  5. FLAGYL (METRONIDAZOLE) [Concomitant]
     Indication: CROHN^S DISEASE
     Route: 048
     Dates: start: 201301, end: 20130706
  6. CIPROFLOXACIN. [Concomitant]
     Active Substance: CIPROFLOXACIN
     Indication: URINARY TRACT INFECTION
     Route: 048
     Dates: start: 20130125, end: 20130706

REACTIONS (4)
  - Feeling jittery [Unknown]
  - Insomnia [Unknown]
  - Nightmare [Unknown]
  - Drug ineffective [Unknown]

NARRATIVE: CASE EVENT DATE: 201306
